FAERS Safety Report 9583084 (Version 1)
Quarter: 2013Q4

REPORT INFORMATION
  Report Type: Spontaneous
  Country: US (occurrence: US)
  Receive Date: 20131002
  Receipt Date: 20131002
  Transmission Date: 20140711
  Serious: No
  Sender: FDA-Public Use
  Company Number: US-AMGEN-USASP2013044784

PATIENT
  Age: 28 Year
  Sex: Female
  Weight: 45.35 kg

DRUGS (2)
  1. ENBREL [Suspect]
     Indication: PRODUCT USED FOR UNKNOWN INDICATION
     Dosage: 50 MG, EVERY WEEK
     Route: 058
  2. TOPAMAX [Concomitant]
     Dosage: 25 MG, UNK
     Route: 048

REACTIONS (1)
  - Nasopharyngitis [Recovered/Resolved]
